FAERS Safety Report 22355387 (Version 2)
Quarter: 2023Q2

REPORT INFORMATION
  Report Type: Report from Study
  Country: AT (occurrence: AT)
  Receive Date: 20230523
  Receipt Date: 20230526
  Transmission Date: 20230722
  Serious: Yes (Other)
  Sender: FDA-Public Use
  Company Number: AT-PFM-2021-12550

PATIENT

DRUGS (7)
  1. NERATINIB [Suspect]
     Active Substance: NERATINIB
     Indication: Breast cancer
     Dosage: 120 MG/DAY
     Route: 048
     Dates: start: 20211215, end: 20211221
  2. NERATINIB [Suspect]
     Active Substance: NERATINIB
     Dosage: 160 MG
     Route: 048
     Dates: start: 20211222, end: 20211228
  3. NERATINIB [Suspect]
     Active Substance: NERATINIB
     Dosage: 200 MG
     Route: 048
     Dates: start: 20211229, end: 20220102
  4. NERATINIB [Suspect]
     Active Substance: NERATINIB
     Dosage: 160 MG
     Route: 048
     Dates: start: 20220107, end: 20220222
  5. NERATINIB [Suspect]
     Active Substance: NERATINIB
     Dosage: 120 MG
     Route: 048
     Dates: start: 20220228, end: 20221214
  6. CALCIUM [Concomitant]
     Active Substance: CALCIUM
     Indication: Prophylaxis
     Dosage: 500 MG, DAILY
     Route: 048
     Dates: start: 202007
  7. CHOLECALCIFEROL [Concomitant]
     Active Substance: CHOLECALCIFEROL
     Indication: Prophylaxis
     Dosage: 800 IU, DAILY
     Route: 048
     Dates: start: 202007

REACTIONS (5)
  - Hypokalaemia [Recovered/Resolved]
  - Diarrhoea [Recovered/Resolved]
  - Fatigue [Recovered/Resolved]
  - Prescribed underdose [Unknown]
  - Off label use [Unknown]

NARRATIVE: CASE EVENT DATE: 20211215
